FAERS Safety Report 25710360 (Version 2)
Quarter: 2025Q3

REPORT INFORMATION
  Report Type: Report from Study
  Country: CA (occurrence: CA)
  Receive Date: 20250821
  Receipt Date: 20250918
  Transmission Date: 20251021
  Serious: Yes (Other)
  Sender: CELLTRION
  Company Number: CA-CELLTRION INC.-2025CA028209

PATIENT

DRUGS (12)
  1. BEVACIZUMAB [Suspect]
     Active Substance: BEVACIZUMAB
     Indication: Retinal vein occlusion
     Route: 042
  2. ACTEMRA [Suspect]
     Active Substance: TOCILIZUMAB
     Indication: Giant cell arteritis
     Dosage: 162.0 MILLIGRAM, 1 EVERY 1 WEEKS
     Route: 058
  3. ACTEMRA [Suspect]
     Active Substance: TOCILIZUMAB
     Indication: Giant cell arteritis
     Dosage: 162.0 MILLIGRAM, 1 EVERY 1 WEEKS
     Route: 058
  4. ASPIRIN [Concomitant]
     Active Substance: ASPIRIN
  5. APIXABAN [Concomitant]
     Active Substance: APIXABAN
  6. CALCIUM [Concomitant]
     Active Substance: CALCIUM
  7. DENOSUMAB [Concomitant]
     Active Substance: DENOSUMAB
  8. METOPROLOL [Concomitant]
     Active Substance: METOPROLOL
  9. PANTOPRAZOLE [Concomitant]
     Active Substance: PANTOPRAZOLE
  10. PREDNISONE [Concomitant]
     Active Substance: PREDNISONE
  11. PREVACID [Concomitant]
     Active Substance: LANSOPRAZOLE
  12. CHOLECALCIFEROL [Concomitant]
     Active Substance: CHOLECALCIFEROL

REACTIONS (5)
  - General physical health deterioration [Recovering/Resolving]
  - Lumbar vertebral fracture [Recovering/Resolving]
  - Fall [Recovering/Resolving]
  - Off label use [Recovering/Resolving]
  - Intentional product use issue [Unknown]
